FAERS Safety Report 7318383-1 (Version None)
Quarter: 2011Q1

REPORT INFORMATION
  Report Type: 
  Country: None (occurrence: None)
  Receive Date: 20110218
  Receipt Date: 20110218
  Transmission Date: 20110831
  Serious: Yes (Other)
  Sender: FDA-Public Use
  Company Number: None

PATIENT

DRUGS (8)
  1. TOPROL-XL [Concomitant]
  2. BELATACEPT [Suspect]
     Indication: IMMUNOSUPPRESSION
     Dosage: 5 MG/KG
     Dates: start: 20090219, end: 20100923
  3. PROZAC [Concomitant]
  4. ASPIRIN [Concomitant]
  5. PROCARDIA XL [Concomitant]
  6. PROVACHOL [Concomitant]
  7. MULTI-VITAMIN [Concomitant]
  8. AMBIEN [Concomitant]

REACTIONS (1)
  - ANTIBODY TEST POSITIVE [None]
